FAERS Safety Report 16554487 (Version 1)
Quarter: 2019Q3

REPORT INFORMATION
  Report Type: Spontaneous
  Country: US (occurrence: US)
  Receive Date: 20190710
  Receipt Date: 20190710
  Transmission Date: 20191004
  Serious: Yes (Hospitalization)
  Sender: FDA-Public Use
  Company Number: US-MYLANLABS-2019M1064285

PATIENT
  Age: 11 Year
  Sex: Female

DRUGS (3)
  1. GENTAMICIN. [Concomitant]
     Active Substance: GENTAMICIN
     Indication: ANTIBIOTIC THERAPY
     Dosage: THE GIRL RECEIVED GENTAMICIN ONCE.
     Route: 065
  2. AMPICILLIN [Suspect]
     Active Substance: AMPICILLIN
     Indication: ANTIBIOTIC THERAPY
     Dosage: THE GIRL RECEIVED AMPICILLIN AT 35 MG/KG OR 2000MG/DOSE EVERY 2 HOURS PER INSTITUTIONAL GUIDELINE...
     Route: 065
  3. FLAGYL [Concomitant]
     Active Substance: METRONIDAZOLE\METRONIDAZOLE HYDROCHLORIDE
     Indication: ANTIBIOTIC THERAPY
     Dosage: THE GIRL RECEIVED METRONIDAZOLE ONCE.
     Route: 065

REACTIONS (5)
  - Ureteric obstruction [Recovered/Resolved]
  - Calculus urinary [Recovered/Resolved]
  - Crystalluria [Recovered/Resolved]
  - Oliguria [Recovered/Resolved]
  - Haematuria [Recovered/Resolved]
